FAERS Safety Report 5856894-6 (Version None)
Quarter: 2008Q3

REPORT INFORMATION
  Report Type: 
  Country: None (occurrence: None)
  Receive Date: 20080822
  Receipt Date: 20080822
  Transmission Date: 20090109
  Serious: Yes (Death)
  Sender: FDA-Public Use
  Company Number: None

PATIENT
  Age: 45 Year
  Sex: Male
  Weight: 68.0396 kg

DRUGS (2)
  1. DURAGESIC-100 [Suspect]
     Indication: BACK PAIN
     Dosage: 1 PATCH Q 48/HR TRANSDERMAL
     Route: 062
     Dates: start: 20000101, end: 20080705
  2. DURAGESIC-100 [Suspect]
     Indication: MIGRAINE
     Dosage: 1 PATCH Q 48/HR TRANSDERMAL
     Route: 062
     Dates: start: 20000101, end: 20080705

REACTIONS (1)
  - ACCIDENTAL OVERDOSE [None]
